FAERS Safety Report 9247964 (Version 1)
Quarter: 2013Q2

REPORT INFORMATION
  Report Type: Spontaneous
  Country: US (occurrence: US)
  Receive Date: 20130423
  Receipt Date: 20130423
  Transmission Date: 20140414
  Serious: No
  Sender: FDA-Public Use
  Company Number: US-MYLANLABS-2013S1002648

PATIENT
  Age: 76 Year
  Sex: Female
  Weight: 56.25 kg

DRUGS (4)
  1. IPRATROPIUM BROMIDE AND ALBUTEROL SULFATE INHALATION SOLUTION [Suspect]
     Indication: DYSPNOEA
     Dosage: AS NEEDED
     Route: 055
     Dates: start: 200612
  2. ENALAPRIL [Concomitant]
     Indication: HYPERTENSION
  3. VERAPAMIL [Concomitant]
     Indication: ANGINA PECTORIS
  4. LORATADINE [Concomitant]
     Indication: HYPERSENSITIVITY

REACTIONS (3)
  - Glossodynia [Recovering/Resolving]
  - Oropharyngeal pain [Recovering/Resolving]
  - Pharyngeal oedema [Recovering/Resolving]
